FAERS Safety Report 10927845 (Version 2)
Quarter: 2015Q2

REPORT INFORMATION
  Report Type: Spontaneous
  Country: BR (occurrence: BR)
  Receive Date: 20150319
  Receipt Date: 20150429
  Transmission Date: 20150821
  Serious: Yes (Death, Hospitalization, Other)
  Sender: FDA-Public Use
  Company Number: PHHY2015BR032868

PATIENT
  Sex: Male

DRUGS (7)
  1. EXELON PATCH [Suspect]
     Active Substance: RIVASTIGMINE
     Dosage: 13.3 MG (PATCH 27MG/15CM2), QD
     Route: 062
     Dates: start: 2013
  2. EXELON PATCH [Suspect]
     Active Substance: RIVASTIGMINE
     Indication: DEMENTIA ALZHEIMER^S TYPE
     Dosage: 4.6 MG (PATCH 5CM2), QD
     Route: 062
     Dates: start: 201107, end: 2012
  3. MODIK [Concomitant]
     Indication: SKIN CANCER
     Dosage: 15 G, Q72H (EVERY THREE DAYS)
     Route: 061
     Dates: start: 2008
  4. EXELON PATCH [Suspect]
     Active Substance: RIVASTIGMINE
     Dosage: 9.5 MG (PATCH 10CM2), QD
     Route: 062
     Dates: start: 2012, end: 2013
  5. RISPERIDONE. [Concomitant]
     Active Substance: RISPERIDONE
     Indication: PRODUCT USED FOR UNKNOWN INDICATION
     Dosage: UNK
     Route: 065
  6. MORATUS [Concomitant]
     Indication: PRODUCT USED FOR UNKNOWN INDICATION
     Dosage: UNK
     Route: 065
  7. ROHYDORM [Concomitant]
     Indication: PRODUCT USED FOR UNKNOWN INDICATION
     Dosage: UNK
     Route: 065

REACTIONS (12)
  - Skin cancer [Not Recovered/Not Resolved]
  - Weight decreased [Recovering/Resolving]
  - Drug ineffective [Not Recovered/Not Resolved]
  - Feeding disorder [Unknown]
  - Screaming [Not Recovered/Not Resolved]
  - Dementia Alzheimer^s type [Not Recovered/Not Resolved]
  - Disorientation [Not Recovered/Not Resolved]
  - Atrophy [Not Recovered/Not Resolved]
  - Coma [Not Recovered/Not Resolved]
  - Concomitant disease aggravated [Not Recovered/Not Resolved]
  - Decubitus ulcer [Recovering/Resolving]
  - Cardio-respiratory arrest [Fatal]
